FAERS Safety Report 10472338 (Version 3)
Quarter: 2014Q4

REPORT INFORMATION
  Report Type: Spontaneous
  Country: US (occurrence: None)
  Receive Date: 20140922
  Receipt Date: 20141023
  Transmission Date: 20150528
  Serious: Yes (Death, Hospitalization)
  Sender: FDA-Public Use
  Company Number: HYP201409-000063

PATIENT
  Age: 27 Year
  Sex: Male

DRUGS (7)
  1. POTASSIUM (POTASSIUM) [Concomitant]
     Active Substance: POTASSIUM
  2. RAVICTI [Suspect]
     Active Substance: GLYCEROL PHENYLBUTYRATE
     Indication: UREA CYCLE ENZYME DEFICIENCY
     Dates: start: 201308, end: 20140916
  3. L-ARGININE (ARGININE) [Concomitant]
  4. CALCIUM CARBONATE (CALCIUM CARBONATE) [Concomitant]
  5. KEPPRA [Concomitant]
     Active Substance: LEVETIRACETAM
  6. TRICITRATES (CITRIC ACID, POTASSIUM CITRATE, SODIUM CITRATE ACID) [Concomitant]
  7. TOPAMAX [Concomitant]
     Active Substance: TOPIRAMATE

REACTIONS (8)
  - Hepatic failure [None]
  - Escherichia sepsis [None]
  - Ammonia increased [None]
  - Infectious colitis [None]
  - Pancreatitis [None]
  - Colitis [None]
  - Abdominal pain [None]
  - Gait disturbance [None]

NARRATIVE: CASE EVENT DATE: 20140904
